FAERS Safety Report 25588526 (Version 1)
Quarter: 2025Q3

REPORT INFORMATION
  Report Type: Spontaneous
  Country: TR (occurrence: TR)
  Receive Date: 20250722
  Receipt Date: 20250722
  Transmission Date: 20251021
  Serious: Yes (Death, Hospitalization)
  Sender: MEDEXUS PHARMA
  Company Number: TR-MEDEXUS PHARMA, INC.-2025MED00208

PATIENT
  Age: 58 Year
  Sex: Male

DRUGS (6)
  1. METHOTREXATE [Suspect]
     Active Substance: METHOTREXATE
     Indication: Central nervous system lymphoma
     Dosage: 3000 MG/M2, 1X/DAY
     Route: 037
     Dates: start: 20240902
  2. METHOTREXATE [Suspect]
     Active Substance: METHOTREXATE
     Route: 037
     Dates: start: 20240930, end: 20241003
  3. CYTARABINE [Concomitant]
     Active Substance: CYTARABINE
     Indication: Central nervous system lymphoma
     Dosage: 100 MG/M2, 1X/DAY
     Dates: start: 20240902
  4. CYTARABINE [Concomitant]
     Active Substance: CYTARABINE
     Dates: start: 20240930, end: 20241003
  5. RITUXIMAB [Concomitant]
     Active Substance: RITUXIMAB
     Indication: Central nervous system lymphoma
     Dosage: 375 MG/M2, 1X/DAY
     Dates: start: 20240902
  6. RITUXIMAB [Concomitant]
     Active Substance: RITUXIMAB
     Dates: start: 20240930, end: 20241003

REACTIONS (2)
  - Multiple organ dysfunction syndrome [Fatal]
  - SJS-TEN overlap [Not Recovered/Not Resolved]

NARRATIVE: CASE EVENT DATE: 20240901
